FAERS Safety Report 14657268 (Version 1)
Quarter: 2018Q1

REPORT INFORMATION
  Report Type: Spontaneous
  Country: JP (occurrence: JP)
  Receive Date: 20180319
  Receipt Date: 20180319
  Transmission Date: 20180509
  Serious: Yes (Other)
  Sender: FDA-Public Use
  Company Number: JP-EISAI MEDICAL RESEARCH-EC-2018-037104

PATIENT
  Age: 47 Year
  Sex: Female

DRUGS (14)
  1. FYCOMPA [Suspect]
     Active Substance: PERAMPANEL
     Route: 048
  2. FYCOMPA [Suspect]
     Active Substance: PERAMPANEL
     Route: 048
  3. FYCOMPA [Suspect]
     Active Substance: PERAMPANEL
     Route: 048
  4. CLONAZEPAM. [Concomitant]
     Active Substance: CLONAZEPAM
     Indication: PRODUCT USED FOR UNKNOWN INDICATION
  5. PRIMIDONE. [Concomitant]
     Active Substance: PRIMIDONE
     Indication: PRODUCT USED FOR UNKNOWN INDICATION
  6. FYCOMPA [Suspect]
     Active Substance: PERAMPANEL
     Indication: PRODUCT USED FOR UNKNOWN INDICATION
     Route: 048
  7. SODIUM VALPROATE [Concomitant]
     Active Substance: VALPROATE SODIUM
     Indication: PRODUCT USED FOR UNKNOWN INDICATION
  8. ZONISAMIDE. [Concomitant]
     Active Substance: ZONISAMIDE
     Indication: PRODUCT USED FOR UNKNOWN INDICATION
  9. FYCOMPA [Suspect]
     Active Substance: PERAMPANEL
     Route: 048
  10. FYCOMPA [Suspect]
     Active Substance: PERAMPANEL
     Route: 048
  11. LEVETIRACETAM. [Concomitant]
     Active Substance: LEVETIRACETAM
     Indication: PRODUCT USED FOR UNKNOWN INDICATION
     Dosage: UNKNOWN
  12. FYCOMPA [Suspect]
     Active Substance: PERAMPANEL
     Route: 048
  13. FYCOMPA [Suspect]
     Active Substance: PERAMPANEL
     Route: 048
  14. PIRACETAM [Concomitant]
     Active Substance: PIRACETAM
     Indication: PRODUCT USED FOR UNKNOWN INDICATION

REACTIONS (3)
  - Somnolence [Unknown]
  - Suicide attempt [Unknown]
  - Irritability [Unknown]
